FAERS Safety Report 22181309 (Version 1)
Quarter: 2023Q2

REPORT INFORMATION
  Report Type: Spontaneous
  Country: US (occurrence: US)
  Receive Date: 20230406
  Receipt Date: 20230406
  Transmission Date: 20230721
  Serious: Yes (Other)
  Sender: FDA-Public Use
  Company Number: US-PFIZER INC-PV202300060404

PATIENT
  Age: 38 Day
  Sex: Male

DRUGS (4)
  1. ARGININE HYDROCHLORIDE [Suspect]
     Active Substance: ARGININE HYDROCHLORIDE
     Indication: Argininosuccinate lyase deficiency
     Dosage: 600 MG/KG, 1X/DAY
  2. ARGININE HYDROCHLORIDE [Suspect]
     Active Substance: ARGININE HYDROCHLORIDE
     Indication: Hyperammonaemia
     Dosage: 100 MG/KG, 1X/DAY
  3. SODIUM PHENYLBUTYRATE [Suspect]
     Active Substance: SODIUM PHENYLBUTYRATE
     Indication: Argininosuccinate lyase deficiency
     Dosage: UNK
  4. SODIUM PHENYLBUTYRATE [Suspect]
     Active Substance: SODIUM PHENYLBUTYRATE
     Indication: Hyperammonaemia

REACTIONS (2)
  - Lethargy [Unknown]
  - Acidosis hyperchloraemic [Unknown]
